FAERS Safety Report 11211266 (Version 1)
Quarter: 2015Q2

REPORT INFORMATION
  Report Type: Spontaneous
  Country: IT (occurrence: None)
  Receive Date: 20150619
  Receipt Date: 20150619
  Transmission Date: 20150821
  Serious: Yes (Hospitalization)
  Sender: FDA-Public Use
  Company Number: FK201502848

PATIENT
  Age: 11 Month
  Sex: Female
  Weight: 8 kg

DRUGS (5)
  1. MEROPENEM (MEROPENEM) [Concomitant]
     Active Substance: MEROPENEM
  2. PREDNISONE (PREDNISONE) [Concomitant]
     Active Substance: PREDNISONE
  3. CYTARABINE (MANUFACTURER UNKNOWN) (CYTARABINE) (CYTARABINE) [Suspect]
     Active Substance: CYTARABINE
     Indication: CHEMOTHERAPY
     Dosage: 380 MG,  1D
     Route: 042
     Dates: start: 20150525, end: 20150526
  4. CLADRIBINE (CLADRIBINE) (CLADRIBINE) [Suspect]
     Active Substance: CLADRIBINE
     Indication: CHEMOTHERAPY
     Dosage: 2.4 MG, 1 D
     Dates: start: 20150526, end: 20150527
  5. VINBLASTINE SULFATE (VINBLASTINE SULFATE) (VINBLASTINE SULFATE) [Suspect]
     Active Substance: VINBLASTINE SULFATE
     Indication: CHEMOTHERAPY
     Dosage: 1.5 MG, 1 WK
     Dates: start: 20150220, end: 20150402

REACTIONS (6)
  - Cholestasis [None]
  - Venoocclusive disease [None]
  - Abnormal weight gain [None]
  - Dyspnoea [None]
  - Hepatomegaly [None]
  - Thrombocytopenia [None]

NARRATIVE: CASE EVENT DATE: 20150527
